FAERS Safety Report 17939805 (Version 2)
Quarter: 2020Q2

REPORT INFORMATION
  Report Type: Report from Study
  Country: US (occurrence: US)
  Receive Date: 20200625
  Receipt Date: 20200630
  Transmission Date: 20200714
  Serious: Yes (Death)
  Sender: FDA-Public Use
  Company Number: US-ASTRAZENECA-2020SE80460

PATIENT
  Age: 24980 Day
  Sex: Male

DRUGS (1)
  1. FASENRA [Suspect]
     Active Substance: BENRALIZUMAB
     Indication: ASTHMA
     Dosage: 30 MG (1 SYRINGE) AT WEEK 8 THEN EVERY 8 WEEKS THEREAFTER
     Route: 058
     Dates: start: 20191017, end: 20200504

REACTIONS (1)
  - Death [Fatal]

NARRATIVE: CASE EVENT DATE: 20200517
